FAERS Safety Report 4949564-X (Version None)
Quarter: 2006Q1

REPORT INFORMATION
  Report Type: 
  Country: None (occurrence: None)
  Receive Date: 20060127
  Receipt Date: 20050202
  Transmission Date: 20060701
  Serious: Yes (Hospitalization)
  Sender: FDA-Public Use
  Company Number: 05-02-0151

PATIENT
  Age: 37 Year
  Sex: Male

DRUGS (1)
  1. CLOZAPINE [Suspect]
     Indication: SCHIZOPHRENIA
     Dosage: 300-450MG QD, ORAL
     Route: 048
     Dates: start: 20000801

REACTIONS (1)
  - TREATMENT NONCOMPLIANCE [None]
